FAERS Safety Report 9357364 (Version 3)
Quarter: 2014Q1

REPORT INFORMATION
  Report Type: Report from Study
  Country: JP (occurrence: JP)
  Receive Date: 20130620
  Receipt Date: 20140204
  Transmission Date: 20141002
  Serious: Yes (Other)
  Sender: FDA-Public Use
  Company Number: JP-JNJFOC-20130610112

PATIENT
  Age: 76 Year
  Sex: Female
  Weight: 53 kg

DRUGS (12)
  1. SIMPONI [Suspect]
     Indication: RHEUMATOID ARTHRITIS
     Route: 058
     Dates: start: 20130111
  2. SIMPONI [Suspect]
     Indication: RHEUMATOID ARTHRITIS
     Route: 058
     Dates: start: 20121214
  3. METOLATE [Suspect]
     Indication: RHEUMATOID ARTHRITIS
     Route: 048
     Dates: end: 20130118
  4. SALAZOSULFAPYRIDINE [Concomitant]
     Indication: RHEUMATOID ARTHRITIS
  5. PREDONINE [Concomitant]
     Indication: RHEUMATOID ARTHRITIS
     Route: 048
  6. LOXONIN [Concomitant]
     Indication: RHEUMATOID ARTHRITIS
  7. MOHRUS TAPE [Concomitant]
     Indication: RHEUMATOID ARTHRITIS
     Route: 062
  8. FOLIAMIN [Concomitant]
     Indication: PROPHYLAXIS
  9. IRBETAN [Concomitant]
     Indication: HYPERTENSION
     Route: 048
  10. CALBLOCK [Concomitant]
     Indication: HYPERTENSION
     Route: 048
  11. ALOGLIPTIN BENZOATE [Concomitant]
     Indication: DIABETES MELLITUS
     Route: 048
  12. AMARYL [Concomitant]
     Indication: DIABETES MELLITUS
     Route: 048

REACTIONS (2)
  - Pneumonia bacterial [Recovered/Resolved]
  - Nasopharyngitis [Recovered/Resolved]
